FAERS Safety Report 5867540-X (Version None)
Quarter: 2008Q3

REPORT INFORMATION
  Report Type: 
  Country: None (occurrence: None)
  Receive Date: 20080902
  Receipt Date: 20070817
  Transmission Date: 20090109
  Serious: No
  Sender: FDA-Public Use
  Company Number: US-ABBOTT-07P-163-0378770-00

PATIENT
  Sex: Female
  Weight: 88.076 kg

DRUGS (3)
  1. DEPAKOTE ER [Suspect]
     Indication: AFFECTIVE DISORDER
     Route: 048
     Dates: start: 20070601
  2. HORMONE REPLACEMENT THERAPY [Concomitant]
     Indication: MENOPAUSE
     Route: 050
     Dates: start: 20070701
  3. PROGESTERONE [Concomitant]
     Indication: MENOPAUSE
     Route: 048
     Dates: start: 20070701

REACTIONS (3)
  - DIZZINESS [None]
  - VISION BLURRED [None]
  - WEIGHT INCREASED [None]
